FAERS Safety Report 11048307 (Version 1)
Quarter: 2015Q2

REPORT INFORMATION
  Report Type: Spontaneous
  Country: JP (occurrence: JP)
  Receive Date: 20150420
  Receipt Date: 20150420
  Transmission Date: 20150821
  Serious: Yes (Hospitalization)
  Sender: FDA-Public Use
  Company Number: JP-009507513-1504JPN016607

PATIENT
  Age: 80 Year
  Sex: Male

DRUGS (4)
  1. FORXIGA [Suspect]
     Active Substance: DAPAGLIFLOZIN
     Indication: TYPE 2 DIABETES MELLITUS
     Dosage: 1 TABLET PER DAY
     Route: 048
  2. FORXIGA [Suspect]
     Active Substance: DAPAGLIFLOZIN
     Dosage: 2 DF, UNK
     Route: 048
  3. GLACTIV [Suspect]
     Active Substance: SITAGLIPTIN
     Indication: TYPE 2 DIABETES MELLITUS
     Route: 048
  4. MIGLITOL. [Suspect]
     Active Substance: MIGLITOL
     Route: 048

REACTIONS (1)
  - Hypoglycaemia [Unknown]
